FAERS Safety Report 6450300-9 (Version None)
Quarter: 2009Q4

REPORT INFORMATION
  Report Type: 
  Country: None (occurrence: None)
  Receive Date: 20091116
  Receipt Date: 20090917
  Transmission Date: 20100525
  Serious: No
  Sender: FDA-Public Use
  Company Number: WAES 0909USA02440

PATIENT
  Age: 38 Year
  Sex: Female
  Weight: 91.6266 kg

DRUGS (3)
  1. ISENTRESS [Suspect]
     Indication: ANTIRETROVIRAL THERAPY
     Dosage: 400 MG BID PO
     Route: 048
     Dates: start: 20090825, end: 20090828
  2. ATRIPLA [Concomitant]
  3. TRUVADA [Concomitant]

REACTIONS (3)
  - PRURITUS [None]
  - RASH GENERALISED [None]
  - SKIN SWELLING [None]
